FAERS Safety Report 9678945 (Version 1)
Quarter: 2013Q4

REPORT INFORMATION
  Report Type: Spontaneous
  Country: FR (occurrence: FR)
  Receive Date: 20131108
  Receipt Date: 20131108
  Transmission Date: 20140711
  Serious: Yes (Hospitalization)
  Sender: FDA-Public Use
  Company Number: FR-BRISTOL-MYERS SQUIBB COMPANY-19721323

PATIENT
  Age: 61 Year
  Sex: Female

DRUGS (5)
  1. ABILIFY TABS 15 MG [Suspect]
     Indication: PSYCHIATRIC DECOMPENSATION
     Route: 048
     Dates: start: 20130911
  2. LOXAPAC [Suspect]
     Indication: AGITATION
     Route: 048
     Dates: start: 20130916
  3. LEPTICUR [Suspect]
     Route: 048
     Dates: start: 20130914
  4. IMOVANE [Concomitant]
  5. SERESTA [Concomitant]

REACTIONS (2)
  - Intestinal obstruction [Recovered/Resolved]
  - Vomiting [Recovered/Resolved]
